FAERS Safety Report 9922472 (Version 1)
Quarter: 2014Q1

REPORT INFORMATION
  Report Type: Spontaneous
  Country: US (occurrence: US)
  Receive Date: 20140225
  Receipt Date: 20140225
  Transmission Date: 20141002
  Serious: No
  Sender: FDA-Public Use
  Company Number: US-MYLANLABS-2013S1019215

PATIENT
  Sex: Female
  Weight: 65.77 kg

DRUGS (3)
  1. ATENOLOL TABLETS, USP [Suspect]
     Route: 048
  2. ATENOLOL TABLETS, USP [Suspect]
     Route: 048
  3. ARMOUR THYROID [Concomitant]
     Indication: HYPOTHYROIDISM

REACTIONS (3)
  - Choking [Not Recovered/Not Resolved]
  - Sinus congestion [Not Recovered/Not Resolved]
  - Reaction to drug excipients [Not Recovered/Not Resolved]
